FAERS Safety Report 17695679 (Version 1)
Quarter: 2020Q2

REPORT INFORMATION
  Report Type: Spontaneous
  Country: US (occurrence: US)
  Receive Date: 20200423
  Receipt Date: 20200423
  Transmission Date: 20200714
  Serious: Yes (Other)
  Sender: FDA-Public Use
  Company Number: US-NAPPMUNDI-USA-2020-0150216

PATIENT
  Sex: Male

DRUGS (1)
  1. OXYCONTIN [Suspect]
     Active Substance: OXYCODONE HYDROCHLORIDE
     Indication: PRODUCT USED FOR UNKNOWN INDICATION
     Route: 048

REACTIONS (8)
  - Chills [Unknown]
  - Drug dependence [Recovering/Resolving]
  - Pain [Unknown]
  - Suicidal ideation [Unknown]
  - Muscle spasms [Unknown]
  - Psychiatric symptom [Unknown]
  - Emotional distress [Unknown]
  - Night sweats [Unknown]

NARRATIVE: CASE EVENT DATE: 199812
